FAERS Safety Report 24096888 (Version 1)
Quarter: 2024Q3

REPORT INFORMATION
  Report Type: Spontaneous
  Country: US (occurrence: US)
  Receive Date: 20240716
  Receipt Date: 20240716
  Transmission Date: 20241016
  Serious: No
  Sender: GRIFOLS
  Company Number: US-IGSA-BIG0025558

PATIENT
  Age: 63 Year
  Sex: Female
  Weight: 72.562 kg

DRUGS (2)
  1. GAMMAKED [Suspect]
     Active Substance: HUMAN IMMUNOGLOBULIN G
     Indication: Myasthenia gravis
     Dosage: 1200 UNITED STATES PHARMACOPEIA UNIT, UNKNOWN
     Route: 042
     Dates: start: 2022
  2. GAMMAKED [Suspect]
     Active Substance: HUMAN IMMUNOGLOBULIN G
     Indication: Off label use
     Dosage: 600 UNITED STATES PHARMACOPEIA UNIT, TOTAL
     Route: 042
     Dates: start: 20230817, end: 20230817

REACTIONS (2)
  - Blood pressure increased [Not Recovered/Not Resolved]
  - Heart rate decreased [Not Recovered/Not Resolved]
